FAERS Safety Report 9189510 (Version 1)
Quarter: 2013Q1

REPORT INFORMATION
  Report Type: Spontaneous
  Country: AR (occurrence: AR)
  Receive Date: 20130326
  Receipt Date: 20130326
  Transmission Date: 20140127
  Serious: Yes (Death, Hospitalization, Other)
  Sender: FDA-Public Use
  Company Number: PHHY2013AR028433

PATIENT
  Sex: Female

DRUGS (3)
  1. EXFORGE [Suspect]
     Indication: BLOOD PRESSURE
     Dosage: 1 DF (VALSARTAN 160MG AND AMLODIPINE 05MG) DAILY
     Route: 048
  2. GALVUS [Suspect]
     Indication: DIABETES MELLITUS
     Dosage: 2 DF DAILY
     Route: 048
  3. BRONCHODILATORS [Concomitant]
     Dosage: UNK UKN, UNK

REACTIONS (6)
  - Cardio-respiratory arrest [Fatal]
  - Dyspnoea [Fatal]
  - Systolic dysfunction [Unknown]
  - Traumatic lung injury [Unknown]
  - Decreased appetite [Unknown]
  - General physical health deterioration [Unknown]
